FAERS Safety Report 7076706-5 (Version None)
Quarter: 2010Q4

REPORT INFORMATION
  Report Type: 
  Country: None (occurrence: None)
  Receive Date: 20101101
  Receipt Date: 20101018
  Transmission Date: 20110411
  Serious: Yes (Hospitalization)
  Sender: FDA-Public Use
  Company Number: US-ELI_LILLY_AND_COMPANY-US201010004650

PATIENT
  Sex: Female

DRUGS (13)
  1. FORTEO [Suspect]
     Indication: OSTEOPOROSIS
     Dosage: 20 UG, DAILY (1/D)
     Dates: end: 20101012
  2. FORTEO [Suspect]
     Dosage: 20 UG, DAILY (1/D)
     Dates: start: 20101015
  3. CELEBREX [Concomitant]
  4. FERROUS SULFATE [Concomitant]
  5. LEVOTHYROXINE [Concomitant]
  6. NORCO [Concomitant]
  7. ROPINIROLE [Concomitant]
  8. SANCTURA [Concomitant]
  9. SENOKOT [Concomitant]
  10. SERTRALINE HYDROCHLORIDE [Concomitant]
  11. WARFARIN [Concomitant]
  12. VITAMIN D2 [Concomitant]
  13. CALCIUM [Concomitant]

REACTIONS (1)
  - KNEE ARTHROPLASTY [None]
